FAERS Safety Report 10497488 (Version 1)
Quarter: 2014Q4

REPORT INFORMATION
  Report Type: Spontaneous
  Country: JP (occurrence: JP)
  Receive Date: 20141006
  Receipt Date: 20141006
  Transmission Date: 20150528
  Serious: Yes (Hospitalization)
  Sender: FDA-Public Use
  Company Number: JP-SA-2014SA134827

PATIENT

DRUGS (1)
  1. DAONIL [Suspect]
     Active Substance: GLYBURIDE
     Route: 048

REACTIONS (3)
  - Hypoglycaemia [Unknown]
  - Encephalopathy [Unknown]
  - Altered state of consciousness [Unknown]
